FAERS Safety Report 13926176 (Version 3)
Quarter: 2017Q3

REPORT INFORMATION
  Report Type: Spontaneous
  Country: SG (occurrence: SG)
  Receive Date: 20170831
  Receipt Date: 20170914
  Transmission Date: 20171127
  Serious: Yes (Death, Other)
  Sender: FDA-Public Use
  Company Number: SG-PFIZER INC-2017371720

PATIENT
  Age: 79 Year
  Sex: Female

DRUGS (13)
  1. MAXOLON [Concomitant]
     Active Substance: METOCLOPRAMIDE HYDROCHLORIDE
     Dosage: 10 MG, TDS PRN
     Dates: start: 20170826
  2. IMDEX [Concomitant]
     Dosage: 30 MG, DAILY, OM
     Dates: start: 20170818, end: 20170821
  3. ACYCLOVIR /00587301/ [Concomitant]
     Active Substance: ACYCLOVIR
     Dosage: 400 MG, 2X/DAY
  4. VFEND [Suspect]
     Active Substance: VORICONAZOLE
     Indication: ASPERGILLUS INFECTION
     Dosage: 200 MG Q12H
     Route: 048
     Dates: start: 20170815, end: 20170828
  5. VITAMIN B COMPLEX [Concomitant]
     Active Substance: CYANOCOBALAMIN\DEXPANTHENOL\NIACINAMIDE\PYRIDOXINE HYDROCHLORIDE\RIBOFLAVIN 5^-PHOSPHATE SODIUM\THIAMINE HYDROCHLORIDE\VITAMIN B COMPLEX
     Dosage: 1 DF, DAILY, OM
  6. PANADOL [Concomitant]
     Active Substance: ACETAMINOPHEN
     Dosage: 1 G, 4X/DAY, Q6H PRN
  7. GAVISCON /01405501/ [Concomitant]
     Active Substance: SODIUM ALGINATE\SODIUM BICARBONATE
     Dosage: 10 ML, TDS PRN
  8. MORPHINE [Concomitant]
     Active Substance: MORPHINE
     Dosage: 2.5 MG, Q4H PRN
     Dates: start: 20170825
  9. CALCIUM CARB/VITAMIN D 1 [Concomitant]
     Dosage: 1 DF, DAILY, OM
  10. DIGOXIN. [Concomitant]
     Active Substance: DIGOXIN
     Dosage: 62.5 MG, DAILY, OM
     Dates: start: 20170825, end: 20170827
  11. CARVEDILOL. [Concomitant]
     Active Substance: CARVEDILOL
     Dosage: 6.25 MG, 2X/DAY
     Dates: start: 20170824
  12. MEROPENEM. [Concomitant]
     Active Substance: MEROPENEM
     Dosage: UNK
     Dates: start: 20170821, end: 20170825
  13. FAMOTIDINE. [Concomitant]
     Active Substance: FAMOTIDINE
     Dosage: 20 MG, DAILY, OM

REACTIONS (10)
  - Cardiac arrest [Fatal]
  - Blood pressure immeasurable [Fatal]
  - Myelodysplastic syndrome [Fatal]
  - Pneumonia [Fatal]
  - Somnolence [Unknown]
  - Dyskinesia [Unknown]
  - Aspergillus infection [Fatal]
  - Hypotension [Unknown]
  - Tachycardia [Fatal]
  - Bradycardia [Fatal]

NARRATIVE: CASE EVENT DATE: 20170828
